FAERS Safety Report 7373350-7 (Version None)
Quarter: 2011Q1

REPORT INFORMATION
  Report Type: 
  Country: None (occurrence: None)
  Receive Date: 20110324
  Receipt Date: 20110321
  Transmission Date: 20110831
  Serious: Yes (Other)
  Sender: FDA-Public Use
  Company Number: US-AMGEN-USASP2011012095

PATIENT
  Sex: Female

DRUGS (6)
  1. ANTI-D                             /00016801/ [Concomitant]
  2. CORTICOSTEROIDS [Concomitant]
  3. RITUXIMAB [Concomitant]
  4. DANAZOL [Concomitant]
  5. IMMUNOGLOBULINS [Concomitant]
  6. NPLATE [Suspect]
     Indication: IDIOPATHIC THROMBOCYTOPENIC PURPURA
     Dosage: UNK
     Dates: start: 20101025

REACTIONS (1)
  - SPLENOMEGALY [None]
